FAERS Safety Report 5635496-0 (Version None)
Quarter: 2008Q1

REPORT INFORMATION
  Report Type: 
  Country: None (occurrence: None)
  Receive Date: 20080222
  Receipt Date: 20080211
  Transmission Date: 20080703
  Serious: Yes (Hospitalization)
  Sender: FDA-Public Use
  Company Number: US-ELI_LILLY_AND_COMPANY-US200802002182

PATIENT
  Sex: Female

DRUGS (3)
  1. FORTEO [Suspect]
     Dates: start: 20080128
  2. CALCITONIN SALMON [Concomitant]
     Route: 045
     Dates: end: 20080101
  3. VITAMIN D [Concomitant]
     Dates: end: 20080101

REACTIONS (5)
  - DIZZINESS [None]
  - HEADACHE [None]
  - PRODUCTIVE COUGH [None]
  - RESPIRATORY TRACT CONGESTION [None]
  - SPINAL FRACTURE [None]
